FAERS Safety Report 4581119-1 (Version None)
Quarter: 2005Q1

REPORT INFORMATION
  Report Type: 
  Country: None (occurrence: None)
  Receive Date: 20050214
  Receipt Date: 20040809
  Transmission Date: 20050727
  Serious: No
  Sender: FDA-Public Use
  Company Number: US-GLAXOSMITHKLINE-A0521563A

PATIENT
  Age: 15 Year
  Sex: Female

DRUGS (5)
  1. LAMICTAL [Suspect]
     Indication: BIPOLAR DISORDER
     Dosage: 25MG PER DAY
     Route: 048
     Dates: start: 20040727
  2. ASACOL [Suspect]
  3. DEPAKOTE [Concomitant]
  4. THYROID TAB [Concomitant]
  5. VALPROIC ACID [Concomitant]
     Dosage: 500MG TWICE PER DAY
     Route: 048

REACTIONS (3)
  - LYMPHADENOPATHY [None]
  - PYREXIA [None]
  - RASH ERYTHEMATOUS [None]
